FAERS Safety Report 4943576-8 (Version None)
Quarter: 2006Q1

REPORT INFORMATION
  Report Type: 
  Country: None (occurrence: None)
  Receive Date: 20060310
  Receipt Date: 20060227
  Transmission Date: 20060701
  Serious: Yes (Other)
  Sender: FDA-Public Use
  Company Number: B0406827A

PATIENT
  Age: 57 Year
  Sex: Male

DRUGS (1)
  1. MALARONE [Suspect]
     Indication: FOREIGN TRAVEL
     Dosage: ORAL
     Route: 048
     Dates: end: 20051217

REACTIONS (3)
  - DEMYELINATION [None]
  - NEUROPATHY PERIPHERAL [None]
  - POLYNEUROPATHY [None]
